FAERS Safety Report 7960497-7 (Version None)
Quarter: 2011Q4

REPORT INFORMATION
  Report Type: 
  Country: None (occurrence: None)
  Receive Date: 20111206
  Receipt Date: 20111125
  Transmission Date: 20120403
  Serious: Yes (Life-Threatening)
  Sender: FDA-Public Use
  Company Number: FR-BAXTER-2011BH037684

PATIENT
  Age: 59 Year
  Sex: Female

DRUGS (12)
  1. VINCRISTINE SULFATE [Suspect]
     Indication: MULTIPLE MYELOMA
     Route: 042
     Dates: start: 20030201, end: 20030801
  2. DEXAMETHASONE [Suspect]
     Route: 048
     Dates: start: 20030201, end: 20030801
  3. ALKERAN [Suspect]
     Indication: MULTIPLE MYELOMA
     Route: 048
     Dates: start: 20071001, end: 20080101
  4. PREDNISOLONE [Suspect]
     Indication: MULTIPLE MYELOMA
     Route: 048
     Dates: start: 20071001, end: 20080101
  5. PLERIXAFOR [Suspect]
     Indication: HAEMATOPOIETIC STEM CELL MOBILISATION
     Route: 058
     Dates: start: 20110613, end: 20110616
  6. CYCLOPHOSPHAMIDE [Suspect]
     Indication: HAEMATOPOIETIC STEM CELL MOBILISATION
     Route: 042
     Dates: start: 20030527, end: 20030527
  7. ALKERAN [Suspect]
     Route: 048
     Dates: start: 20031001, end: 20031001
  8. VELCADE [Suspect]
     Indication: MULTIPLE MYELOMA
     Route: 042
     Dates: start: 20071001, end: 20080101
  9. LENOGRASTIM [Suspect]
     Indication: HAEMATOPOIETIC STEM CELL MOBILISATION
     Route: 058
     Dates: start: 20110612, end: 20110618
  10. DOXORUBICIN HCL [Suspect]
     Indication: MULTIPLE MYELOMA
     Route: 042
     Dates: start: 20030201, end: 20030801
  11. LENALIDOMIDE [Suspect]
     Indication: MULTIPLE MYELOMA
     Route: 048
     Dates: start: 20091212, end: 20101001
  12. DEXAMETHASONE [Suspect]
     Indication: MULTIPLE MYELOMA
     Route: 048
     Dates: start: 20091212, end: 20101001

REACTIONS (1)
  - MYELODYSPLASTIC SYNDROME [None]
